FAERS Safety Report 8443957-4 (Version None)
Quarter: 2012Q2

REPORT INFORMATION
  Report Type: 
  Country: None (occurrence: None)
  Receive Date: 20120618
  Receipt Date: 20120608
  Transmission Date: 20120825
  Serious: Yes (Hospitalization)
  Sender: FDA-Public Use
  Company Number: US-BAYER-2011-041924

PATIENT
  Age: 42 Year
  Sex: Female
  Weight: 63 kg

DRUGS (10)
  1. YASMIN [Suspect]
     Indication: PREMENSTRUAL SYNDROME
     Route: 048
     Dates: start: 20060601, end: 20060826
  2. YAZ [Suspect]
     Dosage: UNK
     Route: 048
     Dates: start: 20060601, end: 20060801
  3. IBUPROFEN [Concomitant]
     Dosage: UNK
     Dates: start: 20020101, end: 20070101
  4. LORAZEPAM [Concomitant]
     Dosage: UNK
     Dates: start: 20060101, end: 20070101
  5. TRAZODONE HCL [Concomitant]
  6. MACROBID [Concomitant]
     Dosage: 100 MG, 1 CAPSULE BID FOR 10 DAYS
     Route: 048
     Dates: start: 20060508
  7. XANAX [Concomitant]
     Dosage: UNK
     Dates: start: 20010101, end: 20100101
  8. LEXAPRO [Concomitant]
     Dosage: 10 MG, UNK
     Dates: start: 20060101
  9. ATIVAN [Concomitant]
     Indication: ANXIETY
     Dosage: 0.5 MG, TID
  10. LORTAB [Concomitant]

REACTIONS (8)
  - GENERAL PHYSICAL HEALTH DETERIORATION [None]
  - INJURY [None]
  - PULMONARY EMBOLISM [None]
  - ANXIETY [None]
  - CHEST PAIN [None]
  - PAIN [None]
  - DYSPNOEA [None]
  - EMOTIONAL DISTRESS [None]
